FAERS Safety Report 6092922-3 (Version None)
Quarter: 2009Q1

REPORT INFORMATION
  Report Type: 
  Country: None (occurrence: None)
  Receive Date: 20090223
  Receipt Date: 20090206
  Transmission Date: 20090719
  Serious: Yes (Other)
  Sender: FDA-Public Use
  Company Number: 2008BM000245

PATIENT
  Age: 71 Year
  Sex: Male
  Weight: 103.1 kg

DRUGS (4)
  1. 6R-BH4     (SAPROPROTEIN DIHYDROCHLORIDE) [Suspect]
     Indication: ALBUMINURIA
     Dosage: 400 MG BID PO
     Route: 048
     Dates: start: 20081006, end: 20081211
  2. ASCORBIC ACID [Suspect]
     Indication: ALBUMINURIA
     Dosage: 500 MG BID PO
     Route: 048
     Dates: start: 20081121, end: 20081208
  3. LISINOPRIL [Suspect]
     Dosage: 40 MG QD PO
     Route: 048
     Dates: start: 20061121, end: 20081215
  4. METFORMIN [Concomitant]

REACTIONS (35)
  - ABDOMINAL DISTENSION [None]
  - ABDOMINAL TENDERNESS [None]
  - ATELECTASIS [None]
  - ATRIAL FIBRILLATION [None]
  - CALCULUS URETERIC [None]
  - CARDIAC TAMPONADE [None]
  - DRUG INEFFECTIVE [None]
  - FLATULENCE [None]
  - FLUID OVERLOAD [None]
  - HAEMOGLOBIN DECREASED [None]
  - HAEMOTHORAX [None]
  - HYPERKALAEMIA [None]
  - HYPOPHAGIA [None]
  - HYPOTENSION [None]
  - HYPOVOLAEMIA [None]
  - ISCHAEMIA [None]
  - LABORATORY TEST ABNORMAL [None]
  - LUNG CONSOLIDATION [None]
  - METABOLIC DISORDER [None]
  - MYOCARDIAL INFARCTION [None]
  - NEPHROLITHIASIS [None]
  - PLEURAL EFFUSION [None]
  - PNEUMONIA [None]
  - POST PROCEDURAL COMPLICATION [None]
  - PULMONARY CONGESTION [None]
  - PULMONARY OEDEMA [None]
  - RENAL ARTERY STENOSIS [None]
  - RENAL ATROPHY [None]
  - RENAL FAILURE ACUTE [None]
  - RESPIRATORY FAILURE [None]
  - SEPSIS [None]
  - SICKLE CELL ANAEMIA WITH CRISIS [None]
  - TREATMENT NONCOMPLIANCE [None]
  - URINE SODIUM INCREASED [None]
  - WHITE BLOOD CELL COUNT INCREASED [None]
